FAERS Safety Report 17939679 (Version 1)
Quarter: 2020Q2

REPORT INFORMATION
  Report Type: Spontaneous
  Country: SE (occurrence: SE)
  Receive Date: 20200624
  Receipt Date: 20200624
  Transmission Date: 20200714
  Serious: Yes (Other)
  Sender: FDA-Public Use
  Company Number: NVSC2020SE176925

PATIENT
  Age: 39 Year
  Sex: Male
  Weight: 105 kg

DRUGS (1)
  1. DESLORATADINE SANDOZ [Suspect]
     Active Substance: DESLORATADINE
     Indication: HYPERSENSITIVITY
     Route: 065
     Dates: start: 20200414, end: 20200417

REACTIONS (3)
  - Depression [Recovered/Resolved]
  - Insomnia [Recovered/Resolved]
  - Anxiety [Recovered/Resolved]

NARRATIVE: CASE EVENT DATE: 20200416
